FAERS Safety Report 18793763 (Version 3)
Quarter: 2021Q4

REPORT INFORMATION
  Report Type: Spontaneous
  Country: BE (occurrence: BE)
  Receive Date: 20210127
  Receipt Date: 20211108
  Transmission Date: 20220303
  Serious: Yes (Hospitalization)
  Sender: FDA-Public Use
  Company Number: BE-TEVA-2021-BE-1873384

PATIENT
  Age: 45 Year
  Sex: Female
  Weight: 60.1 kg

DRUGS (6)
  1. AJOVY [Suspect]
     Active Substance: FREMANEZUMAB-VFRM
     Indication: Migraine
     Dosage: 225 MG/1.5 ML
     Route: 058
     Dates: start: 20200716, end: 20201015
  2. PERINDOPRIL [Concomitant]
     Active Substance: PERINDOPRIL
     Indication: Hypertension
     Dosage: 10 MILLIGRAM DAILY;
     Route: 048
     Dates: start: 202006
  3. INDERAL 40 mg [Concomitant]
     Indication: Hypertension
     Dosage: 40 MILLIGRAM DAILY;
     Route: 048
     Dates: start: 202010
  4. SUMATRIPTAN [Concomitant]
     Active Substance: SUMATRIPTAN
     Indication: Migraine
     Dosage: WHEN NEEDED
     Route: 048
     Dates: start: 201810
  5. CATAFLAM 50 mg [Concomitant]
     Indication: Migraine
     Dosage: WHEN NEEDED
     Route: 048
     Dates: start: 202003
  6. PANTOPRAZOLE SODIUM [Concomitant]
     Active Substance: PANTOPRAZOLE SODIUM
     Indication: Migraine
     Dosage: WHEN NEEDED
     Route: 048
     Dates: start: 202003

REACTIONS (5)
  - Transient ischaemic attack [Recovered/Resolved]
  - Facial paralysis [Recovered/Resolved]
  - Monoplegia [Recovered/Resolved]
  - Hypertension [Unknown]
  - Therapeutic product effect incomplete [Unknown]

NARRATIVE: CASE EVENT DATE: 20201001
